FAERS Safety Report 7404613-4 (Version None)
Quarter: 2011Q2

REPORT INFORMATION
  Report Type: 
  Country: None (occurrence: None)
  Receive Date: 20110411
  Receipt Date: 20110401
  Transmission Date: 20111010
  Serious: Yes (Other)
  Sender: FDA-Public Use
  Company Number: US-BIOGENIDEC-2010BI032410

PATIENT
  Age: 47 Year
  Sex: Female
  Weight: 86 kg

DRUGS (3)
  1. AVONEX [Suspect]
     Indication: MULTIPLE SCLEROSIS
     Route: 030
     Dates: start: 20000301
  2. BACLOFEN [Concomitant]
     Indication: MUSCULOSKELETAL STIFFNESS
  3. CELEXA [Concomitant]

REACTIONS (1)
  - BREAST CANCER IN SITU [None]
